FAERS Safety Report 4359811-3 (Version None)
Quarter: 2004Q2

REPORT INFORMATION
  Report Type: 
  Country: None (occurrence: None)
  Receive Date: 20040514
  Receipt Date: 20040504
  Transmission Date: 20050107
  Serious: Yes (Other)
  Sender: FDA-Public Use
  Company Number: 2003-04-0249

PATIENT
  Age: 57 Year
  Sex: Female
  Weight: 58.9676 kg

DRUGS (5)
  1. PEG-INTRON [Suspect]
     Indication: HEPATITIS C
     Dosage: 80 MCG QWK SUBCUTANEOUS
     Route: 058
     Dates: start: 20030221, end: 20030401
  2. REBETOL [Suspect]
     Indication: HEPATITIS C
     Dosage: 800 MG QD ORAL
     Route: 048
     Dates: start: 20030221, end: 20030401
  3. TYLENOL [Concomitant]
  4. URSO [Concomitant]
  5. VITAMINS/MINERALS/DIETARY SUPPLEMENTS (NOS) [Concomitant]

REACTIONS (6)
  - ANAEMIA [None]
  - BLINDNESS UNILATERAL [None]
  - INTRAOCULAR PRESSURE INCREASED [None]
  - ISCHAEMIA [None]
  - OPTIC NERVE INJURY [None]
  - VISUAL FIELD DEFECT [None]
